FAERS Safety Report 6724705-2 (Version None)
Quarter: 2010Q2

REPORT INFORMATION
  Report Type: 
  Country: None (occurrence: None)
  Receive Date: 20100511
  Receipt Date: 20100430
  Transmission Date: 20101027
  Serious: Yes (Hospitalization)
  Sender: FDA-Public Use
  Company Number: 2010GW000334

PATIENT
  Sex: Female

DRUGS (3)
  1. MAXAIR [Suspect]
     Indication: ASTHMA
     Dosage: 0.4 MG;BID;INH
     Dates: start: 20070101
  2. SYMBICORT [Concomitant]
  3. MAXAIR [Suspect]
     Indication: ASTHMA

REACTIONS (7)
  - AMNESIA [None]
  - ARTHRITIS [None]
  - DRUG INEFFECTIVE [None]
  - DYSPNOEA [None]
  - MALAISE [None]
  - NAUSEA [None]
  - PANIC REACTION [None]
